FAERS Safety Report 9162296 (Version 1)
Quarter: 2013Q1

REPORT INFORMATION
  Report Type: Spontaneous
  Country: SE (occurrence: None)
  Receive Date: 20130222
  Receipt Date: 20130222
  Transmission Date: 20140127
  Serious: Yes (Hospitalization)
  Sender: FDA-Public Use
  Company Number: SYM-2013-00808

PATIENT
  Age: 69 Year
  Sex: Male

DRUGS (3)
  1. ENALAPRIL MALEATE [Suspect]
     Indication: ESSENTIAL HYPERTENSION
     Route: 048
     Dates: end: 20121212
  2. METFORMIN (METFORMIN) (METFORMIN) [Concomitant]
  3. MINDIAB (GLIPIZIDE)(GLIPIZIDE) [Concomitant]

REACTIONS (3)
  - Rash [None]
  - Rash [None]
  - Anaphylactic reaction [None]
